FAERS Safety Report 7934886-0 (Version None)
Quarter: 2011Q4

REPORT INFORMATION
  Report Type: 
  Country: None (occurrence: None)
  Receive Date: 20111122
  Receipt Date: 20111118
  Transmission Date: 20120403
  Serious: Yes (Hospitalization, Other)
  Sender: FDA-Public Use
  Company Number: DE-ABBOTT-11P-062-0715741-00

PATIENT
  Sex: Male
  Weight: 92 kg

DRUGS (6)
  1. HUMIRA [Suspect]
     Indication: INTRAOCULAR PRESSURE INCREASED
  2. HUMIRA [Suspect]
     Indication: RHEUMATOID ARTHRITIS
     Route: 058
     Dates: start: 20110211, end: 20111101
  3. METHOTREXATE [Concomitant]
     Indication: RHEUMATOID ARTHRITIS
     Route: 058
  4. BEVACIZUMAB [Concomitant]
     Indication: UVEITIS
     Route: 031
  5. HUMIRA [Suspect]
     Indication: UVEITIS
  6. CALCIUMFOLINAT [Concomitant]
     Indication: PRODUCT USED FOR UNKNOWN INDICATION
     Dosage: 5 MG FOLINIC ACID PER WEEK

REACTIONS (3)
  - INTRAOCULAR PRESSURE INCREASED [None]
  - DRUG INEFFECTIVE [None]
  - ABDOMINAL PAIN [None]
